FAERS Safety Report 10365303 (Version 1)
Quarter: 2014Q3

REPORT INFORMATION
  Report Type: Spontaneous
  Country: US (occurrence: US)
  Receive Date: 20140806
  Receipt Date: 20140806
  Transmission Date: 20150326
  Serious: No
  Sender: FDA-Public Use
  Company Number: US-PFIZER INC-2014216950

PATIENT

DRUGS (1)
  1. CHANTIX [Suspect]
     Active Substance: VARENICLINE TARTRATE
     Indication: SMOKING CESSATION THERAPY
     Dosage: 1 MG, DAILY

REACTIONS (6)
  - Abnormal dreams [Unknown]
  - Drug intolerance [Unknown]
  - Insomnia [Unknown]
  - Dizziness [Unknown]
  - Euphoric mood [Unknown]
  - Disturbance in attention [Unknown]
